FAERS Safety Report 20856288 (Version 1)
Quarter: 2022Q2

REPORT INFORMATION
  Report Type: Spontaneous
  Country: CA (occurrence: CA)
  Receive Date: 20220520
  Receipt Date: 20220520
  Transmission Date: 20220721
  Serious: Yes (Other)
  Sender: FDA-Public Use
  Company Number: CA-CIPHER-2021-CA-000623

PATIENT
  Age: 43 Year
  Sex: Female

DRUGS (23)
  1. BETAMETHASONE VALERATE [Suspect]
     Active Substance: BETAMETHASONE VALERATE
     Indication: Product used for unknown indication
     Route: 065
     Dates: start: 20181019, end: 20191024
  2. FETZIMA [Suspect]
     Active Substance: LEVOMILNACIPRAN HYDROCHLORIDE
     Route: 065
     Dates: start: 20181112, end: 20191207
  3. FINACEA [Suspect]
     Active Substance: AZELAIC ACID
     Dosage: DOSE UNKNOWN
     Route: 065
     Dates: start: 20181002, end: 20191015
  4. HYDROMORPHONE [Suspect]
     Active Substance: HYDROMORPHONE
     Route: 065
     Dates: start: 20171107, end: 20180307
  5. LAMICTAL [Suspect]
     Active Substance: LAMOTRIGINE
     Route: 048
     Dates: start: 20200528
  6. MYRBETRIQ [Suspect]
     Active Substance: MIRABEGRON
     Route: 065
     Dates: start: 20190325, end: 20190406
  7. NAPROXEN [Suspect]
     Active Substance: NAPROXEN
     Route: 065
     Dates: start: 20180926, end: 20181225
  8. PANTOPRAZOLE SODIUM [Suspect]
     Active Substance: PANTOPRAZOLE SODIUM
     Route: 065
     Dates: start: 20180807, end: 20191001
  9. RANITIDINE [Suspect]
     Active Substance: RANITIDINE
     Dosage: DOSE UNKNOWN
     Route: 065
     Dates: start: 20180807, end: 20191001
  10. TOPAMAX [Suspect]
     Active Substance: TOPIRAMATE
     Route: 065
     Dates: start: 20201019
  11. TOPICORT [Suspect]
     Active Substance: DESOXIMETASONE
     Dosage: DOSE UNKNOWN
     Route: 065
     Dates: start: 20171215, end: 20180414
  12. AIMOVIG [Suspect]
     Active Substance: ERENUMAB-AOOE
     Indication: Migraine
     Dosage: DOSE UNKNOWN
     Route: 065
     Dates: start: 20190401
  13. TRAZODONE [Suspect]
     Active Substance: TRAZODONE HYDROCHLORIDE
     Dates: start: 20171030, end: 20180227
  14. TRETINOIN [Suspect]
     Active Substance: TRETINOIN
     Dosage: DOSE UNKNOWN
     Route: 065
     Dates: start: 20181029, end: 20191024
  15. VITAMIN D3 [Suspect]
     Active Substance: CHOLECALCIFEROL
     Dosage: DOSE UNKNOWN
     Route: 065
     Dates: start: 20180807, end: 20191001
  16. CYCLOBENZAPRINE HYDROCHLORIDE [Suspect]
     Active Substance: CYCLOBENZAPRINE HYDROCHLORIDE
     Dates: start: 20180807, end: 20191001
  17. ATOMOXETINE [Suspect]
     Active Substance: ATOMOXETINE
     Indication: Migraine
     Route: 065
     Dates: start: 20190401, end: 20191001
  18. FLUTICASONE FUROATE [Suspect]
     Active Substance: FLUTICASONE FUROATE
     Dosage: METERED DOSE
     Route: 065
     Dates: start: 20180807, end: 20191001
  19. BOTULINUM TOXIN TYPE A [Suspect]
     Active Substance: BOTULINUM TOXIN TYPE A
     Dosage: DOSE UNKNOWN
     Route: 065
     Dates: start: 20200120
  20. BUTRANS [Suspect]
     Active Substance: BUPRENORPHINE
     Dosage: 10 MCG/HR
     Route: 065
     Dates: start: 20190107, end: 20190407
  21. MINERALS\VITAMINS [Suspect]
     Active Substance: MINERALS\VITAMINS
     Dates: start: 20180807, end: 20191001
  22. CETIRIZINE HYDROCHLORIDE\PSEUDOEPHEDRINE HYDROCHLORIDE [Suspect]
     Active Substance: CETIRIZINE HYDROCHLORIDE\PSEUDOEPHEDRINE HYDROCHLORIDE
     Dosage: DOSE UNKNOWN
     Dates: start: 20180807, end: 20191001
  23. DOMPERIDONE\PANTOPRAZOLE SODIUM [Suspect]
     Active Substance: DOMPERIDONE\PANTOPRAZOLE SODIUM
     Dates: start: 20180528, end: 20180925

REACTIONS (14)
  - Migraine [Unknown]
  - Pain [Unknown]
  - Paraesthesia [Unknown]
  - Product use in unapproved indication [Unknown]
  - Vomiting [Unknown]
  - Taste disorder [Unknown]
  - Abdominal pain upper [Unknown]
  - Blepharospasm [Unknown]
  - Drug ineffective [Unknown]
  - Drug intolerance [Unknown]
  - Epilepsy [Unknown]
  - Gastrooesophageal reflux disease [Unknown]
  - Hypoaesthesia [Unknown]
  - Memory impairment [Unknown]
